FAERS Safety Report 5492351-7 (Version None)
Quarter: 2007Q4

REPORT INFORMATION
  Report Type: 
  Country: None (occurrence: None)
  Receive Date: 20071022
  Receipt Date: 20071012
  Transmission Date: 20080405
  Serious: Yes (Hospitalization, Other)
  Sender: FDA-Public Use
  Company Number: HQWYE099511SEP07

PATIENT
  Sex: Male
  Weight: 104 kg

DRUGS (7)
  1. PROGRAF [Suspect]
     Indication: PROPHYLAXIS AGAINST TRANSPLANT REJECTION
     Dosage: 0.5 MG TABLET/ 1-0-1
     Route: 048
     Dates: start: 20061207
  2. PANTOPRAZOLE SODIUM [Suspect]
     Dosage: DOSE UNSPECIFIED/1-0-0
     Route: 065
  3. METOPROLOL SUCCINATE [Suspect]
     Indication: HYPERTENSION
     Dosage: DOSE UNSPECIFIED/1-0-0
     Route: 065
  4. URSO FALK [Suspect]
     Indication: CHOLELITHIASIS
     Dosage: DOSE UNSPECIFIED/1-0-1
     Route: 065
  5. ENALAPRIL MALEATE [Concomitant]
     Indication: HYPERTENSION
     Dosage: DOSE UNSPECIFIED/1-0-0
     Route: 065
  6. CELLCEPT [Suspect]
     Indication: PROPHYLAXIS AGAINST TRANSPLANT REJECTION
     Dosage: 500 MG/1-0-1
     Route: 065
  7. AMLODIPINE [Suspect]
     Indication: HYPERTENSION
     Dosage: DOSE UNSPECIFIED/1-0-0
     Route: 065

REACTIONS (1)
  - HEPATIC NEOPLASM MALIGNANT RECURRENT [None]
